FAERS Safety Report 17681527 (Version 1)
Quarter: 2020Q2

REPORT INFORMATION
  Report Type: Spontaneous
  Country: US (occurrence: US)
  Receive Date: 20200417
  Receipt Date: 20200417
  Transmission Date: 20200714
  Serious: Yes (Hospitalization, Other)
  Sender: FDA-Public Use
  Company Number: US-INDIVIOR US-INDV-124425-2020

PATIENT
  Age: 24 Year
  Sex: Male

DRUGS (5)
  1. BUPRENORPHINE/NALOXONE 2 MG FILM [Suspect]
     Active Substance: BUPRENORPHINE\NALOXONE
     Indication: DRUG WITHDRAWAL SYNDROME
     Dosage: 2MILLIGRAM, UNK
     Route: 002
  2. BUPRENORPHINE/NALOXONE 8 MG FILM [Suspect]
     Active Substance: BUPRENORPHINE\NALOXONE
     Indication: DRUG WITHDRAWAL SYNDROME
     Dosage: 8MILLIGRAM, UNK
     Route: 065
  3. BUPRENORPHINE. [Suspect]
     Active Substance: BUPRENORPHINE
     Indication: DRUG DEPENDENCE
     Dosage: UNK
     Route: 065
  4. FENTANYL. [Suspect]
     Active Substance: FENTANYL
     Indication: ANALGESIC THERAPY
     Dosage: 150-250MCG/HR
     Route: 051
  5. FENTANYL. [Suspect]
     Active Substance: FENTANYL
     Indication: SEDATION

REACTIONS (12)
  - Substance abuse [Unknown]
  - Acidosis [Unknown]
  - Pneumonia aspiration [Recovering/Resolving]
  - Vomiting [Unknown]
  - Product use issue [Unknown]
  - Loss of consciousness [Recovered/Resolved]
  - Off label use [Unknown]
  - Rhabdomyolysis [Unknown]
  - Dyspnoea [Unknown]
  - Agitation [Unknown]
  - Drug withdrawal syndrome [Recovered/Resolved]
  - Hypoxia [Unknown]
